FAERS Safety Report 9632768 (Version 2)
Quarter: 2013Q4

REPORT INFORMATION
  Report Type: Spontaneous
  Country: FR (occurrence: FR)
  Receive Date: 20131018
  Receipt Date: 20131031
  Transmission Date: 20140711
  Serious: Yes (Hospitalization)
  Sender: FDA-Public Use
  Company Number: FR-PFIZER INC-2013295602

PATIENT
  Age: 61 Year
  Sex: Female

DRUGS (8)
  1. LYRICA [Suspect]
     Indication: PAIN
     Dosage: 25 MG, 3X/DAY
     Route: 048
     Dates: start: 201301, end: 201309
  2. CYMBALTA [Interacting]
     Indication: DEPRESSION
     Dosage: 1 DF, 1X/DAY
     Route: 048
  3. TOPALGIC LP [Interacting]
     Indication: PAIN
     Dosage: 150 MG, 2X/DAY
     Route: 048
     Dates: start: 201212
  4. TOPALGIC LP [Interacting]
     Dosage: 100 MG, 2X/DAY
  5. BISOPROLOL [Concomitant]
     Dosage: UNK
  6. SERESTA [Concomitant]
     Dosage: UNK
  7. STILNOX [Concomitant]
     Dosage: UNK
  8. SERETIDE [Concomitant]
     Dosage: UNK

REACTIONS (4)
  - Drug interaction [Not Recovered/Not Resolved]
  - Vasodilatation [Not Recovered/Not Resolved]
  - Hyperhidrosis [Not Recovered/Not Resolved]
  - Feeling hot [Not Recovered/Not Resolved]
